FAERS Safety Report 21627826 (Version 1)
Quarter: 2022Q4

REPORT INFORMATION
  Report Type: Spontaneous
  Country: US (occurrence: None)
  Receive Date: 20221121
  Receipt Date: 20221121
  Transmission Date: 20230113
  Serious: No
  Sender: FDA-Public Use
  Company Number: None

PATIENT
  Sex: Female
  Weight: 76.2 kg

DRUGS (11)
  1. JADENU [Suspect]
     Active Substance: DEFERASIROX
     Indication: Myelodysplastic syndrome
     Dosage: FREQUENCY : DAILY;?
     Route: 048
  2. ASPIRIN [Concomitant]
  3. ATORVASTATIN [Concomitant]
  4. CALCIUM [Concomitant]
  5. COMBIGAN [Concomitant]
  6. ELIQUIS [Concomitant]
  7. LUSPATERCEPT [Concomitant]
  8. METOPROLOL [Concomitant]
     Active Substance: METOPROLOL
  9. POTASSIUM [Concomitant]
  10. RESTORIL [Concomitant]
  11. RETACRIT [Concomitant]

REACTIONS (2)
  - Disease progression [None]
  - Drug ineffective [None]
